FAERS Safety Report 6412371-5 (Version None)
Quarter: 2009Q4

REPORT INFORMATION
  Report Type: 
  Country: None (occurrence: None)
  Receive Date: 20091023
  Receipt Date: 20091015
  Transmission Date: 20100525
  Serious: No
  Sender: FDA-Public Use
  Company Number: US-B.I. PHARMACEUTICALS,INC./RIDGEFIELD-2009-BP-12016BP

PATIENT
  Age: 55 Year
  Sex: Female

DRUGS (3)
  1. MICARDIS HCT [Suspect]
     Indication: HYPERTENSION
     Route: 048
     Dates: start: 20020101
  2. LORAZEPAM [Concomitant]
     Indication: ANXIETY
  3. LORAZEPAM [Concomitant]
     Indication: SLEEP DISORDER

REACTIONS (1)
  - AMNESIA [None]
